FAERS Safety Report 4416194-8 (Version None)
Quarter: 2004Q3

REPORT INFORMATION
  Report Type: 
  Country: None (occurrence: None)
  Receive Date: 20040804
  Receipt Date: 20040804
  Transmission Date: 20050211
  Serious: Yes (Hospitalization)
  Sender: FDA-Public Use
  Company Number: None

PATIENT
  Age: 59 Year
  Sex: Male
  Weight: 92 kg

DRUGS (1)
  1. CEFTAZIDIME [Suspect]
     Indication: PNEUMONIA
     Dosage: 2 GM IV Q 8 H
     Route: 042
     Dates: start: 20031009, end: 20031017

REACTIONS (7)
  - ASTERIXIS [None]
  - CONFUSIONAL STATE [None]
  - HALLUCINATION [None]
  - MENTAL STATUS CHANGES [None]
  - METABOLIC DISORDER [None]
  - MYOCLONUS [None]
  - TREMOR [None]
